FAERS Safety Report 17685760 (Version 1)
Quarter: 2020Q2

REPORT INFORMATION
  Report Type: Not Available
  Country: US (occurrence: US)
  Receive Date: 20200420
  Receipt Date: 20200420
  Transmission Date: 20200714
  Serious: No
  Sender: FDA-Public Use
  Company Number: US-NEUROCRINE BIOSCIENCES INC.-2020NBI01278

PATIENT
  Age: 70 Year
  Sex: Male

DRUGS (1)
  1. INGREZZA [Suspect]
     Active Substance: VALBENAZINE
     Indication: TARDIVE DYSKINESIA
     Route: 048
     Dates: start: 20200410

REACTIONS (5)
  - Gait disturbance [Unknown]
  - Tardive dyskinesia [Unknown]
  - Balance disorder [Unknown]
  - Mood altered [Unknown]
  - Somnolence [Unknown]

NARRATIVE: CASE EVENT DATE: 202004
